FAERS Safety Report 15546147 (Version 1)
Quarter: 2018Q4

REPORT INFORMATION
  Report Type: Spontaneous
  Country: US (occurrence: US)
  Receive Date: 20181017
  Receipt Date: 20181017
  Transmission Date: 20190205
  Serious: Yes (Hospitalization)
  Sender: FDA-Public Use
  Company Number: None

PATIENT
  Age: 58 Year
  Sex: Female

DRUGS (1)
  1. OPSUMIT [Suspect]
     Active Substance: MACITENTAN
     Indication: PULMONARY ARTERIAL HYPERTENSION
     Route: 048
     Dates: start: 20180919

REACTIONS (6)
  - Pulmonary hypertension [None]
  - Dyspnoea [None]
  - Condition aggravated [None]
  - Pneumonia [None]
  - Fluid overload [None]
  - Heart rate decreased [None]

NARRATIVE: CASE EVENT DATE: 20180924
